FAERS Safety Report 6892762-9 (Version None)
Quarter: 2010Q3

REPORT INFORMATION
  Report Type: 
  Country: None (occurrence: None)
  Receive Date: 20100731
  Receipt Date: 20080912
  Transmission Date: 20110219
  Serious: No
  Sender: FDA-Public Use
  Company Number: US-PFIZER INC-2008077336

PATIENT
  Sex: Female
  Weight: 81.65 kg

DRUGS (2)
  1. NORVASC [Suspect]
     Indication: HYPERTENSION
     Route: 048
     Dates: start: 20080101
  2. DRUG, UNSPECIFIED [Concomitant]
     Indication: GLAUCOMA

REACTIONS (1)
  - CONSTIPATION [None]
